FAERS Safety Report 19259730 (Version 3)
Quarter: 2021Q3

REPORT INFORMATION
  Report Type: Spontaneous
  Country: CA (occurrence: CA)
  Receive Date: 20210514
  Receipt Date: 20210909
  Transmission Date: 20211014
  Serious: Yes (Other)
  Sender: FDA-Public Use
  Company Number: CA-CIPHER-2021-CA-001028

PATIENT
  Age: 50 Year
  Sex: Female
  Weight: 86 kg

DRUGS (9)
  1. TRAMADOL HYDROCHLORIDE. [Suspect]
     Active Substance: TRAMADOL HYDROCHLORIDE
     Indication: BACK PAIN
     Dosage: DOSE UNKNOWN
     Route: 065
  2. BIOTIN [Concomitant]
     Active Substance: BIOTIN
  3. METHYLPREDNISOLONE. [Concomitant]
     Active Substance: METHYLPREDNISOLONE
     Indication: PREMEDICATION
     Route: 042
  4. TYLENOL [Concomitant]
     Active Substance: ACETAMINOPHEN
  5. BENADRYL [Concomitant]
     Active Substance: DIPHENHYDRAMINE HYDROCHLORIDE
     Route: 048
  6. ACTEMRA [Suspect]
     Active Substance: TOCILIZUMAB
     Indication: RHEUMATOID ARTHRITIS
     Route: 042
  7. METHOTREXATE. [Concomitant]
     Active Substance: METHOTREXATE
     Route: 048
  8. PREDNISONE. [Suspect]
     Active Substance: PREDNISONE
  9. IRBESARTAN. [Concomitant]
     Active Substance: IRBESARTAN

REACTIONS (24)
  - Nasal disorder [Unknown]
  - Nasopharyngitis [Unknown]
  - Skin laceration [Unknown]
  - Influenza [Unknown]
  - Cold sweat [Unknown]
  - Back pain [Unknown]
  - Pruritus [Unknown]
  - Dizziness [Unknown]
  - Nausea [Unknown]
  - Oxygen saturation decreased [Unknown]
  - Spinal stenosis [Unknown]
  - Blood pressure diastolic abnormal [Unknown]
  - Infusion related reaction [Unknown]
  - Pain [Unknown]
  - Abdominal pain [Unknown]
  - Blood pressure increased [Unknown]
  - Headache [Unknown]
  - Blood pressure systolic increased [Unknown]
  - Fatigue [Unknown]
  - Infection [Unknown]
  - Weight decreased [Unknown]
  - Spondylitis [Unknown]
  - Arthralgia [Unknown]
  - Contusion [Unknown]
